FAERS Safety Report 7898782-X (Version None)
Quarter: 2011Q4

REPORT INFORMATION
  Report Type: 
  Country: None (occurrence: None)
  Receive Date: 20111107
  Receipt Date: 20110908
  Transmission Date: 20120403
  Serious: No
  Sender: FDA-Public Use
  Company Number: US-ABBOTT-11P-163-0853195-00

PATIENT
  Sex: Male
  Weight: 64.014 kg

DRUGS (3)
  1. FOLIC ACID [Concomitant]
     Indication: SUPPLEMENTATION THERAPY
  2. MULTI-VITAMIN [Concomitant]
     Indication: SUPPLEMENTATION THERAPY
  3. TRICOR [Suspect]
     Indication: BLOOD CHOLESTEROL INCREASED
     Dates: start: 20110701, end: 20110801

REACTIONS (4)
  - TENDERNESS [None]
  - ABDOMINAL PAIN [None]
  - DYSURIA [None]
  - WEIGHT DECREASED [None]
